FAERS Safety Report 4357576-2 (Version None)
Quarter: 2004Q2

REPORT INFORMATION
  Report Type: 
  Country: None (occurrence: None)
  Receive Date: 20040510
  Receipt Date: 20040428
  Transmission Date: 20050107
  Serious: No
  Sender: FDA-Public Use
  Company Number: 04H-163-0259285-00

PATIENT
  Sex: 0

DRUGS (1)
  1. LIDOCAINE HYDROCHLORIDE [Suspect]
     Indication: VENTRICULAR TACHYCARDIA
     Dosage: 100 MG

REACTIONS (2)
  - APHASIA [None]
  - DYSARTHRIA [None]
